FAERS Safety Report 8870956 (Version 1)
Quarter: 2012Q4

REPORT INFORMATION
  Report Type: 
  Country: US (occurrence: US)
  Receive Date: 20121026
  Receipt Date: 20121026
  Transmission Date: 20130627
  Serious: No
  Sender: FDA-Public Use
  Company Number: US-AMGEN-USASP2012043200

PATIENT
  Sex: Female
  Weight: 86.17 kg

DRUGS (10)
  1. ENBREL [Suspect]
     Indication: PRODUCT USED FOR UNKNOWN INDICATION
     Dosage: 50 mg, 2 times/wk
     Route: 058
  2. METFORMIN [Concomitant]
     Dosage: 500 mg, UNK
  3. LISINOPRIL [Concomitant]
     Dosage: 20 mg, UNK
  4. SIMVASTATIN [Concomitant]
     Dosage: 40 mg, UNK
  5. CLOBETASOL [Concomitant]
     Dosage: GEL
  6. VALTREX [Concomitant]
     Dosage: 1 mg, UNK
  7. FISH OIL [Concomitant]
     Dosage: UNK
  8. VIT D [Concomitant]
     Dosage: High Potency
  9. PROBIOTIC [Concomitant]
     Dosage: UNK
  10. GOLD [Concomitant]
     Dosage: UNK

REACTIONS (3)
  - Injection site pain [Unknown]
  - Injection site erythema [Unknown]
  - Injection site pruritus [Unknown]
